FAERS Safety Report 6743122-2 (Version None)
Quarter: 2010Q2

REPORT INFORMATION
  Report Type: 
  Country: None (occurrence: None)
  Receive Date: 20100525
  Receipt Date: 20100513
  Transmission Date: 20101027
  Serious: Yes (Other)
  Sender: FDA-Public Use
  Company Number: 2010AL002811

PATIENT
  Sex: Female

DRUGS (1)
  1. DIAZEPAM TAB [Suspect]
     Indication: DRUG USE FOR UNKNOWN INDICATION

REACTIONS (2)
  - DRUG ABUSE [None]
  - DRUG DEPENDENCE [None]
